FAERS Safety Report 10918266 (Version 1)
Quarter: 2015Q1

REPORT INFORMATION
  Report Type: Spontaneous
  Country: US (occurrence: None)
  Receive Date: 20150311
  Receipt Date: 20150311
  Transmission Date: 20150721
  Serious: Yes (Death)
  Sender: FDA-Public Use
  Company Number: NSR_01998_2015

PATIENT
  Age: 58 Year
  Sex: Male

DRUGS (5)
  1. AMLODIPINE [Concomitant]
     Active Substance: AMLODIPINE BESYLATE
  2. NAPROXEN. [Concomitant]
     Active Substance: NAPROXEN
  3. DEMOXEPAM. [Concomitant]
     Active Substance: DEMOXEPAM
  4. ETHANOL [Concomitant]
     Active Substance: ALCOHOL
  5. HYDROXYZINE [Suspect]
     Active Substance: HYDROXYZINE\HYDROXYZINE HYDROCHLORIDE
     Indication: PRODUCT USED FOR UNKNOWN INDICATION
     Dosage: NOT THE PRESCRIBE AMOUNT

REACTIONS (3)
  - Toxicity to various agents [None]
  - Emphysema [None]
  - Overdose [None]
